FAERS Safety Report 12113720 (Version 3)
Quarter: 2016Q3

REPORT INFORMATION
  Report Type: Spontaneous
  Country: US (occurrence: US)
  Receive Date: 20160225
  Receipt Date: 20160916
  Transmission Date: 20161109
  Serious: Yes (Other)
  Sender: FDA-Public Use
  Company Number: US-WEST-WARD PHARMACEUTICALS CORP.-US-H14001-16-00297

PATIENT
  Age: 5 Year
  Sex: Female
  Weight: 16.34 kg

DRUGS (3)
  1. SINGULAIR [Concomitant]
     Active Substance: MONTELUKAST SODIUM
     Indication: PRODUCT USED FOR UNKNOWN INDICATION
     Route: 065
  2. AMOXICILLIN. [Suspect]
     Active Substance: AMOXICILLIN
     Indication: EAR INFECTION
     Route: 048
     Dates: start: 20160211, end: 20160212
  3. ZYRTEC [Concomitant]
     Active Substance: CETIRIZINE HYDROCHLORIDE
     Indication: PRODUCT USED FOR UNKNOWN INDICATION
     Route: 065

REACTIONS (11)
  - Screaming [Recovered/Resolved]
  - Tongue blistering [Recovered/Resolved]
  - Scab [Recovered/Resolved]
  - Lip swelling [Recovered/Resolved]
  - Viral infection [Recovered/Resolved]
  - Drug hypersensitivity [Recovered/Resolved]
  - Stomatitis [Recovered/Resolved]
  - Lip haemorrhage [Recovered/Resolved]
  - Oral mucosal blistering [Recovered/Resolved]
  - Oral mucosal erythema [Recovered/Resolved]
  - Drug dose omission [Recovered/Resolved]

NARRATIVE: CASE EVENT DATE: 20160211
